FAERS Safety Report 20382956 (Version 1)
Quarter: 2022Q1

REPORT INFORMATION
  Report Type: Spontaneous
  Country: US (occurrence: US)
  Receive Date: 20220127
  Receipt Date: 20220127
  Transmission Date: 20220423
  Serious: Yes (Hospitalization)
  Sender: FDA-Public Use
  Company Number: US-GW PHARMA-202201USGW00333

PATIENT

DRUGS (1)
  1. EPIDIOLEX [Suspect]
     Active Substance: CANNABIDIOL
     Indication: Lennox-Gastaut syndrome
     Dosage: 9.92 MG/KG/DAY, 360 MILLIGRAM, BID
     Route: 048
     Dates: start: 20211029

REACTIONS (2)
  - Dysphagia [Unknown]
  - Hospitalisation [Unknown]
